FAERS Safety Report 23078532 (Version 1)
Quarter: 2023Q4

REPORT INFORMATION
  Report Type: Spontaneous
  Country: US (occurrence: US)
  Receive Date: 20231018
  Receipt Date: 20231018
  Transmission Date: 20240110
  Serious: No
  Sender: FDA-Public Use
  Company Number: US-BAYER-2023A133689

PATIENT
  Age: 51 Year
  Sex: Female

DRUGS (1)
  1. CIPROFLOXACIN [Suspect]
     Active Substance: CIPROFLOXACIN
     Indication: Urinary tract infection
     Route: 048

REACTIONS (5)
  - Oral mucosal blistering [Recovered/Resolved]
  - Lip swelling [Recovered/Resolved]
  - Tendonitis [Recovered/Resolved]
  - Urinary tract infection [Recovered/Resolved]
  - Mouth ulceration [Recovered/Resolved]
